FAERS Safety Report 18295767 (Version 1)
Quarter: 2020Q3

REPORT INFORMATION
  Report Type: Spontaneous
  Country: US (occurrence: US)
  Receive Date: 20200922
  Receipt Date: 20200922
  Transmission Date: 20201103
  Serious: No
  Sender: FDA-Public Use
  Company Number: US-AMARIN PHARMA, INC.-2020AMR000212

PATIENT
  Age: 85 Year
  Sex: Male
  Weight: 76.27 kg

DRUGS (2)
  1. VASCEPA [Suspect]
     Active Substance: ICOSAPENT ETHYL
     Route: 048
  2. VASCEPA [Suspect]
     Active Substance: ICOSAPENT ETHYL
     Indication: BLOOD TRIGLYCERIDES INCREASED
     Route: 048
     Dates: start: 20191226

REACTIONS (4)
  - Abdominal discomfort [Recovering/Resolving]
  - Cough [Unknown]
  - Intentional underdose [Unknown]
  - Off label use [Unknown]
